FAERS Safety Report 14977784 (Version 1)
Quarter: 2018Q2

REPORT INFORMATION
  Report Type: Spontaneous
  Country: US (occurrence: US)
  Receive Date: 20180515
  Receipt Date: 20180515
  Transmission Date: 20180711
  Serious: Yes (Other)
  Sender: FDA-Public Use
  Company Number: None

PATIENT
  Age: 68 Year
  Sex: Male
  Weight: 110.7 kg

DRUGS (3)
  1. TORSEMIDE 20 MG TABLETS [Suspect]
     Active Substance: TORSEMIDE
     Indication: CARDIAC FAILURE
     Dosage: ?          QUANTITY:2 TABLET(S);?
     Route: 048
  2. XARELTO [Concomitant]
     Active Substance: RIVAROXABAN
  3. ATORVASTATIN [Concomitant]
     Active Substance: ATORVASTATIN

REACTIONS (1)
  - Skin odour abnormal [None]

NARRATIVE: CASE EVENT DATE: 20180401
